FAERS Safety Report 19614970 (Version 5)
Quarter: 2024Q4

REPORT INFORMATION
  Report Type: Spontaneous
  Country: US (occurrence: US)
  Receive Date: 20210727
  Receipt Date: 20241129
  Transmission Date: 20250115
  Serious: Yes (Hospitalization, Other)
  Sender: AZURITY PHARMACEUTICALS
  Company Number: US-ARBOR PHARMACEUTICALS, LLC-US-2020ARB000732

PATIENT
  Age: 10 Year
  Sex: Female

DRUGS (8)
  1. TRIPTODUR [Suspect]
     Active Substance: TRIPTORELIN
     Indication: Precocious puberty
     Dosage: UNK, SINGLE
     Route: 030
     Dates: start: 20200527, end: 20200527
  2. TRIPTODUR [Suspect]
     Active Substance: TRIPTORELIN
     Dosage: UNK, SINGLE (MAINTENANCE DOSE)
     Route: 030
     Dates: start: 20201124, end: 20201124
  3. TRIPTODUR [Suspect]
     Active Substance: TRIPTORELIN
     Dosage: UNK, SINGLE (MAINTENANCE DOSE)
     Route: 030
     Dates: start: 20210526, end: 20210526
  4. TRIPTODUR [Suspect]
     Active Substance: TRIPTORELIN
     Dosage: UNK, SINGLE
     Route: 030
     Dates: start: 20230605, end: 20230605
  5. TRIPTODUR [Suspect]
     Active Substance: TRIPTORELIN
     Dosage: UNK, SINGLE
     Route: 030
     Dates: start: 20231211, end: 20231211
  6. TRIPTODUR [Suspect]
     Active Substance: TRIPTORELIN
     Dosage: MAINTENANCE DOSE
     Route: 030
     Dates: start: 20240612
  7. GUANFACINE [Concomitant]
     Active Substance: GUANFACINE
     Indication: Product used for unknown indication
     Dosage: UNK
     Route: 065
  8. KEFLEX [Concomitant]
     Active Substance: CEPHALEXIN
     Indication: Urinary tract infection
     Dosage: TID
     Route: 065

REACTIONS (16)
  - Encephalitis [Unknown]
  - Scoliosis [Unknown]
  - Mental impairment [Unknown]
  - Loss of personal independence in daily activities [Unknown]
  - Insomnia [Unknown]
  - Mental disorder [Recovering/Resolving]
  - Mania [Unknown]
  - Peripheral swelling [Unknown]
  - Memory impairment [Unknown]
  - Streptococcal infection [Unknown]
  - Ear infection [Unknown]
  - Mood altered [Unknown]
  - Anxiety [Unknown]
  - Mood swings [Unknown]
  - Therapeutic product effect decreased [Unknown]
  - Aggression [Unknown]

NARRATIVE: CASE EVENT DATE: 20200801
